FAERS Safety Report 5481620-2 (Version None)
Quarter: 2007Q4

REPORT INFORMATION
  Report Type: 
  Country: None (occurrence: None)
  Receive Date: 20071010
  Receipt Date: 20070928
  Transmission Date: 20080405
  Serious: Yes (Other)
  Sender: FDA-Public Use
  Company Number: US-ELI_LILLY_AND_COMPANY-US200709006938

PATIENT
  Sex: Male

DRUGS (14)
  1. BYETTA [Suspect]
     Indication: TYPE 2 DIABETES MELLITUS
     Dosage: 5 UG, 2/D
     Route: 058
     Dates: start: 20070201
  2. BYETTA [Suspect]
     Dosage: 10 UG, 2/D
     Route: 058
     Dates: start: 20070301
  3. VITAMIN D [Concomitant]
     Dosage: 5000 U, WEEKLY (1/W)
     Route: 065
  4. HUMALOG MIX 25 [Concomitant]
     Dosage: 10 U, 2/D
  5. NIASPAN [Concomitant]
     Dosage: 500 MG, 2/D
     Route: 065
  6. FOLIC ACID [Concomitant]
     Dosage: UNK, UNKNOWN
     Route: 065
  7. VITAMIN B COMPLEX CAP [Concomitant]
     Dosage: UNK, UNKNOWN
     Route: 065
  8. LIPITOR [Concomitant]
     Dosage: 40 MG, DAILY (1/D)
     Route: 065
  9. ATENOLOL [Concomitant]
     Dosage: 100 MG, 2/D
  10. MONOPRIL [Concomitant]
     Dosage: 40 MG, DAILY (1/D)
     Route: 065
  11. NORVASC [Concomitant]
     Dosage: 10 MG, DAILY (1/D)
     Route: 065
  12. TRICOR [Concomitant]
     Dosage: 48 MG, DAILY (1/D)
     Route: 065
  13. CASODEX [Concomitant]
     Indication: PROSTATE CANCER
     Dosage: UNK, UNKNOWN
     Route: 065
  14. HYDROCHLOROTHIAZIDE [Concomitant]
     Dosage: 50 MG, DAILY (1/D)

REACTIONS (1)
  - NON-HODGKIN'S LYMPHOMA RECURRENT [None]
